FAERS Safety Report 7268195-2 (Version None)
Quarter: 2011Q1

REPORT INFORMATION
  Report Type: 
  Country: None (occurrence: None)
  Receive Date: 20110201
  Receipt Date: 20110126
  Transmission Date: 20110831
  Serious: No
  Sender: FDA-Public Use
  Company Number: US-PFIZER INC-2011019211

PATIENT
  Sex: Male
  Weight: 84 kg

DRUGS (1)
  1. PREMPRO [Suspect]
     Indication: OFF LABEL USE
     Dosage: UNK
     Route: 048
     Dates: start: 20080101

REACTIONS (1)
  - GYNAECOMASTIA [None]
